FAERS Safety Report 6603432-6 (Version None)
Quarter: 2010Q1

REPORT INFORMATION
  Report Type: 
  Country: None (occurrence: None)
  Receive Date: 20100226
  Receipt Date: 20090518
  Transmission Date: 20100710
  Serious: No
  Sender: FDA-Public Use
  Company Number: A0784856A

PATIENT
  Age: 31 Year
  Sex: Female

DRUGS (2)
  1. VALTREX [Suspect]
     Indication: HERPES ZOSTER
     Dosage: 1G THREE TIMES PER DAY
     Route: 048
     Dates: start: 20090513, end: 20090518
  2. VITAMIN TAB [Concomitant]

REACTIONS (6)
  - ALOPECIA [None]
  - DECREASED APPETITE [None]
  - DIZZINESS [None]
  - DRUG EXPOSURE DURING PREGNANCY [None]
  - FATIGUE [None]
  - NAUSEA [None]
